FAERS Safety Report 8806433 (Version 2)
Quarter: 2012Q4

REPORT INFORMATION
  Report Type: 
  Country: FR (occurrence: FR)
  Receive Date: 20120925
  Receipt Date: 20120926
  Transmission Date: 20130627
  Serious: Yes (Other)
  Sender: FDA-Public Use
  Company Number: FR-SANOFI-AVENTIS-2012SA054894

PATIENT
  Age: 45 Year
  Sex: Female

DRUGS (4)
  1. CLOMID [Suspect]
     Indication: OVULATION INDUCTION
     Route: 048
     Dates: start: 20120705, end: 20120709
  2. CLOMID [Suspect]
     Indication: STERILITY
     Route: 048
     Dates: start: 20120705, end: 20120709
  3. PROGESTERONE [Concomitant]
     Indication: PROGESTERONE
     Dosage: 1 vaginal suppository daily
  4. OROMONE [Concomitant]
     Indication: ESTROGEN

REACTIONS (2)
  - Ocular hypertension [Recovered/Resolved]
  - Visual impairment [Recovered/Resolved]
